FAERS Safety Report 18784274 (Version 5)
Quarter: 2022Q3

REPORT INFORMATION
  Report Type: Spontaneous
  Country: US (occurrence: US)
  Receive Date: 20210125
  Receipt Date: 20220906
  Transmission Date: 20221026
  Serious: No
  Sender: FDA-Public Use
  Company Number: US-PFIZER INC-2020516936

PATIENT
  Age: 63 Year
  Sex: Male

DRUGS (4)
  1. EUCRISA [Suspect]
     Active Substance: CRISABOROLE
     Indication: Musculoskeletal disorder
     Dosage: UNK, 2X/DAY (AS NEEDED)
     Route: 061
  2. EUCRISA [Suspect]
     Active Substance: CRISABOROLE
     Indication: Stasis dermatitis
  3. EUCRISA [Suspect]
     Active Substance: CRISABOROLE
     Indication: Peripheral venous disease
  4. EUCRISA [Suspect]
     Active Substance: CRISABOROLE
     Indication: Condition aggravated

REACTIONS (4)
  - Skin disorder [Not Recovered/Not Resolved]
  - Dry skin [Not Recovered/Not Resolved]
  - Sensitivity to weather change [Unknown]
  - Off label use [Unknown]
